FAERS Safety Report 7551658-X (Version None)
Quarter: 2011Q2

REPORT INFORMATION
  Report Type: 
  Country: None (occurrence: None)
  Receive Date: 20110616
  Receipt Date: 20110615
  Transmission Date: 20111010
  Serious: No
  Sender: FDA-Public Use
  Company Number: US-PFIZER INC-2011131333

PATIENT
  Sex: Male

DRUGS (2)
  1. LEXAPRO [Suspect]
     Dosage: UNK
  2. CHANTIX [Suspect]
     Dosage: UNK

REACTIONS (1)
  - LIVER FUNCTION TEST ABNORMAL [None]
